FAERS Safety Report 20249099 (Version 1)
Quarter: 2021Q4

REPORT INFORMATION
  Report Type: Spontaneous
  Country: US (occurrence: US)
  Receive Date: 20211229
  Receipt Date: 20211229
  Transmission Date: 20220303
  Serious: No
  Sender: FDA-Public Use
  Company Number: US-PFIZER INC-202101050858

PATIENT
  Age: 80 Year
  Sex: Female
  Weight: 66.68 kg

DRUGS (3)
  1. HYDROXYZINE PAMOATE [Suspect]
     Active Substance: HYDROXYZINE PAMOATE
     Indication: Pruritus
     Dosage: 25 MG, 3 TIMES A DAY (AS PER NEEDED)
     Route: 048
     Dates: start: 20210813
  2. PREDNISONE [Suspect]
     Active Substance: PREDNISONE
     Dosage: 20 MG, 1X/DAY (FOR SEVEN DAYS)
     Route: 048
  3. CETIRIZINE [Suspect]
     Active Substance: CETIRIZINE HYDROCHLORIDE
     Dosage: 10 MG, 1X/DAY (EVERY DAY)
     Route: 048

REACTIONS (1)
  - Drug ineffective [Not Recovered/Not Resolved]
